FAERS Safety Report 4806076-1 (Version None)
Quarter: 2005Q4

REPORT INFORMATION
  Report Type: 
  Country: None (occurrence: None)
  Receive Date: 20051021
  Receipt Date: 20050926
  Transmission Date: 20060501
  Serious: Yes (Hospitalization)
  Sender: FDA-Public Use
  Company Number: GR-ROCHE-419199

PATIENT
  Age: 25 Year
  Sex: Female
  Weight: 65 kg

DRUGS (3)
  1. ROACUTAN [Suspect]
     Indication: ACNE
     Route: 048
     Dates: start: 20050414, end: 20050707
  2. ROACUTAN [Suspect]
     Route: 048
     Dates: start: 20050707, end: 20050726
  3. ROACUTAN [Suspect]
     Route: 048
     Dates: start: 20050726, end: 20050912

REACTIONS (3)
  - BALANCE DISORDER [None]
  - DIZZINESS [None]
  - HEADACHE [None]
